FAERS Safety Report 13896592 (Version 1)
Quarter: 2017Q3

REPORT INFORMATION
  Report Type: Spontaneous
  Country: US (occurrence: US)
  Receive Date: 20170823
  Receipt Date: 20170823
  Transmission Date: 20171127
  Serious: No
  Sender: FDA-Public Use
  Company Number: US-HORIZON-PEN-0368-2017

PATIENT
  Sex: Female

DRUGS (24)
  1. PENNSAID [Suspect]
     Active Substance: DICLOFENAC SODIUM
     Indication: PRODUCT USED FOR UNKNOWN INDICATION
     Route: 061
  2. OMEPRAZOLE. [Concomitant]
     Active Substance: OMEPRAZOLE
     Dosage: 20 MG ONCE DAILY
     Route: 048
  3. SOMA [Concomitant]
     Active Substance: CARISOPRODOL
     Dosage: 1 DF THREE TIMES DAILY
     Route: 048
  4. LANTUS SOLOSTAR [Concomitant]
     Active Substance: INSULIN GLARGINE
     Dosage: 40 UNITS SC DAILY IN THE EVENING
     Route: 058
  5. SYNTHROID [Concomitant]
     Active Substance: LEVOTHYROXINE SODIUM
     Dosage: 150 ?G ONCE DAILY
     Route: 048
  6. POTASSIUM CHLORIDE. [Concomitant]
     Active Substance: POTASSIUM CHLORIDE
     Dosage: 10 MEQ THRICE DAILY
     Route: 048
  7. SPIRONOLACTONE. [Concomitant]
     Active Substance: SPIRONOLACTONE
     Dosage: 25 MG ONCE DAILY
     Route: 048
  8. WARFARIN [Concomitant]
     Active Substance: WARFARIN
     Dosage: 4 MG AS DIRECTED
     Route: 048
  9. GABAPENTIN. [Concomitant]
     Active Substance: GABAPENTIN
     Indication: PRODUCT USED FOR UNKNOWN INDICATION
     Dosage: 2 DF AT NOON, 3 IN AFTERNOON, 3 AT BEDTIME
     Route: 048
  10. LASIX [Concomitant]
     Active Substance: FUROSEMIDE
     Dosage: 80 MG
     Route: 048
  11. EFFEXOR [Concomitant]
     Active Substance: VENLAFAXINE HYDROCHLORIDE
     Dosage: 75 MG TWICE DAILY
     Route: 048
  12. GLIMEPRIDE [Concomitant]
     Active Substance: GLIMEPIRIDE
     Dosage: 2 MG BID
     Route: 048
  13. TIKOSYN [Concomitant]
     Active Substance: DOFETILIDE
     Dosage: 250 ?G BID
     Route: 048
     Dates: start: 20160727
  14. FLONASE [Concomitant]
     Active Substance: FLUTICASONE PROPIONATE
     Dosage: 1 SPRAY IN EACH NOSTRIL TWICE DAILY
  15. METOLAZONE. [Concomitant]
     Active Substance: METOLAZONE
     Dosage: 2.5 MG AS DIRECTED AS NEEDED
  16. ZOLPIDEM [Concomitant]
     Active Substance: ZOLPIDEM\ZOLPIDEM TARTRATE
     Dosage: 10 MG DAILY AT BEDTIME
     Route: 048
  17. CALCIUM CARBONATE-VITAMIN D3 [Concomitant]
     Dosage: 1 DF THREE TIMES DAILY
     Route: 048
  18. MULTIVITAMIN [Concomitant]
     Active Substance: VITAMINS
     Dosage: 1 DF ONCE DAILY
     Route: 048
  19. NITROGLYCERIN SUBLINGUAL [Concomitant]
     Active Substance: NITROGLYCERIN
     Indication: CHEST PAIN
     Dosage: 0.4 MG AS DIRECTED AS NEEDED
  20. HORIZONTAL NASAL CPAP SYSTEM [Concomitant]
     Dosage: 10 CM DAILY AT BEDTIME
  21. PREDNISONE. [Concomitant]
     Active Substance: PREDNISONE
     Dosage: 5 MG ONCE DAILY
     Route: 048
  22. CETIRIZINE [Concomitant]
     Active Substance: CETIRIZINE HYDROCHLORIDE
     Dosage: 10 MG ONCE DAILY
     Route: 048
  23. BEXTRA [Concomitant]
     Active Substance: VALDECOXIB
  24. VENTOLIN HFA [Concomitant]
     Active Substance: ALBUTEROL SULFATE
     Dosage: 90 ?G 1-2 PUFFS EVERY 4 HRS AS NEEDED

REACTIONS (2)
  - Peripheral swelling [Unknown]
  - Headache [Unknown]
